FAERS Safety Report 8421181-9 (Version None)
Quarter: 2012Q2

REPORT INFORMATION
  Report Type: 
  Country: None (occurrence: None)
  Receive Date: 20120604
  Receipt Date: 20120604
  Transmission Date: 20120825
  Serious: Yes (Hospitalization)
  Sender: FDA-Public Use
  Company Number: None

PATIENT
  Age: 78 Year
  Sex: Male
  Weight: 65.4 kg

DRUGS (1)
  1. HEPARIN [Suspect]
     Indication: THROMBOSIS PROPHYLAXIS
     Dosage: 5000 IU TID SQ
     Route: 058
     Dates: start: 20120102, end: 20120103

REACTIONS (2)
  - HOSPITALISATION [None]
  - THROMBOCYTOPENIA [None]
